FAERS Safety Report 5133466-2 (Version None)
Quarter: 2006Q4

REPORT INFORMATION
  Report Type: 
  Country: None (occurrence: None)
  Receive Date: 20061024
  Receipt Date: 20061023
  Transmission Date: 20070319
  Serious: Yes (Death)
  Sender: FDA-Public Use
  Company Number: US-BRISTOL-MYERS SQUIBB COMPANY-13550884

PATIENT
  Age: 71 Year
  Sex: Male

DRUGS (1)
  1. COUMADIN [Suspect]
     Indication: HEART RATE IRREGULAR
     Dates: start: 20060801

REACTIONS (1)
  - DEATH [None]
